FAERS Safety Report 7607188-X (Version None)
Quarter: 2011Q3

REPORT INFORMATION
  Report Type: 
  Country: None (occurrence: None)
  Receive Date: 20110713
  Receipt Date: 20110628
  Transmission Date: 20111222
  Serious: Yes (Death, Hospitalization)
  Sender: FDA-Public Use
  Company Number: US-PFIZER INC-2008153681

PATIENT
  Age: 49 Year
  Sex: Female

DRUGS (5)
  1. BENZODIAZEPINE DERIVATIVES [Suspect]
     Dosage: UNK
     Route: 048
     Dates: end: 20070101
  2. MELOXICAM [Suspect]
     Dosage: UNK
     Route: 048
     Dates: end: 20070101
  3. PROPOXYPHENE HCL AND ACETAMINOPHEN [Suspect]
     Dosage: UNK
     Route: 048
     Dates: end: 20070101
  4. CELECOXIB [Suspect]
     Dosage: UNK
     Route: 048
     Dates: end: 20070101
  5. ESCITALOPRAM [Suspect]
     Dosage: UNK
     Route: 048
     Dates: end: 20070101

REACTIONS (3)
  - COMPLETED SUICIDE [None]
  - RESPIRATORY ARREST [None]
  - CARDIAC ARREST [None]
